FAERS Safety Report 10147467 (Version 2)
Quarter: 2014Q2

REPORT INFORMATION
  Report Type: Spontaneous
  Country: AU (occurrence: AU)
  Receive Date: 20140501
  Receipt Date: 20140501
  Transmission Date: 20141212
  Serious: Yes (Other)
  Sender: FDA-Public Use
  Company Number: AU-PFIZER INC-2014083907

PATIENT
  Age: 23 Year
  Sex: Female
  Weight: 57 kg

DRUGS (5)
  1. SUTENT [Suspect]
     Indication: ALVEOLAR SOFT PART SARCOMA METASTATIC
     Dosage: 25 MG, DAILY
     Route: 048
     Dates: start: 201211
  2. ALLOPURINOL [Concomitant]
  3. SLOW-K [Concomitant]
  4. CALTRATE [Concomitant]
  5. VITAMIN D [Concomitant]

REACTIONS (4)
  - Renal impairment [Recovering/Resolving]
  - Thrombocytopenia [Recovering/Resolving]
  - Menorrhagia [Recovering/Resolving]
  - Diarrhoea [Recovered/Resolved]
